FAERS Safety Report 7422217-4 (Version None)
Quarter: 2011Q2

REPORT INFORMATION
  Report Type: 
  Country: None (occurrence: None)
  Receive Date: 20110418
  Receipt Date: 20110405
  Transmission Date: 20111010
  Serious: Yes (Other)
  Sender: FDA-Public Use
  Company Number: US-MYLANLABS-2011S1007303

PATIENT
  Age: 55 Year
  Sex: Male

DRUGS (4)
  1. AMITRIPTYLINE [Interacting]
     Route: 065
     Dates: start: 20050124
  2. LEVITRA [Interacting]
     Route: 065
     Dates: start: 20060724
  3. METHADONE [Interacting]
     Route: 065
     Dates: start: 20070518
  4. METHADONE [Suspect]
     Indication: PAIN
     Route: 065
     Dates: start: 20070518

REACTIONS (3)
  - ELECTROCARDIOGRAM QT PROLONGED [None]
  - DRUG INTERACTION [None]
  - SEPTIC SHOCK [None]
